FAERS Safety Report 6309850-8 (Version None)
Quarter: 2009Q3

REPORT INFORMATION
  Report Type: 
  Country: None (occurrence: None)
  Receive Date: 20090814
  Receipt Date: 20090804
  Transmission Date: 20100115
  Serious: Yes (Other)
  Sender: FDA-Public Use
  Company Number: US-PFIZER INC-2009221048

PATIENT
  Sex: Female

DRUGS (13)
  1. TOVIAZ [Suspect]
     Indication: HYPERTONIC BLADDER
     Dosage: 4 MG, 1X/DAY
     Route: 048
     Dates: start: 20090429
  2. TOVIAZ [Suspect]
     Dosage: 4 MG, 2X/DAY
     Dates: end: 20090527
  3. BENICAR [Concomitant]
  4. REGLAN [Concomitant]
  5. NEXIUM [Concomitant]
  6. CYMBALTA [Concomitant]
  7. VYTORIN [Concomitant]
  8. PROPRANOLOL [Concomitant]
  9. ALBUTEROL [Concomitant]
  10. MIDRIN [Concomitant]
  11. LIDODERM [Concomitant]
  12. SUDAFED 12 HOUR [Concomitant]
  13. CLARITIN [Concomitant]

REACTIONS (5)
  - DIZZINESS [None]
  - DRUG INEFFECTIVE [None]
  - GASTRIC BYPASS [None]
  - HYPOGLYCAEMIA [None]
  - MALAISE [None]
